FAERS Safety Report 5900447-8 (Version None)
Quarter: 2008Q3

REPORT INFORMATION
  Report Type: 
  Country: None (occurrence: None)
  Receive Date: 20080926
  Receipt Date: 20080919
  Transmission Date: 20090109
  Serious: Yes (Hospitalization, Disabling)
  Sender: FDA-Public Use
  Company Number: US-AMGEN-US307100

PATIENT
  Sex: Female

DRUGS (3)
  1. AMG 655 - BLINDED [Suspect]
     Indication: ANAEMIA OF MALIGNANT DISEASE
     Route: 042
     Dates: start: 20080625
  2. DOXORUBICIN HCL [Suspect]
     Route: 042
     Dates: start: 20080625
  3. NEUPOGEN [Suspect]
     Indication: NEUTROPENIA

REACTIONS (4)
  - ANAEMIA [None]
  - NEUTROPENIA [None]
  - PNEUMONIA [None]
  - URINARY TRACT INFECTION [None]
